FAERS Safety Report 4614351-9 (Version None)
Quarter: 2005Q1

REPORT INFORMATION
  Report Type: 
  Country: None (occurrence: None)
  Receive Date: 20050315
  Receipt Date: 20050308
  Transmission Date: 20050727
  Serious: Yes (Death)
  Sender: FDA-Public Use
  Company Number: 2005AP01558

PATIENT
  Age: 70 Year
  Sex: Female

DRUGS (22)
  1. IRESSA [Suspect]
     Indication: LUNG NEOPLASM MALIGNANT
     Dosage: 250 MG DAILY PO
     Route: 048
     Dates: start: 20041102
  2. NEXIUM [Concomitant]
     Indication: BREAST CANCER
  3. MUCOMYST [Concomitant]
     Indication: METASTASES TO LUNG
  4. ARIMIDEX [Concomitant]
  5. VIVAL [Concomitant]
  6. CEFUROXIM ^CURASAN^ [Concomitant]
  7. LAKTULOSE ^DAK^ [Concomitant]
  8. FORTUM / NET/ [Concomitant]
  9. DUPHALAC /NET/ [Concomitant]
  10. DIURAL [Concomitant]
  11. PREDNISOLONE [Concomitant]
  12. ZOPICLONE [Concomitant]
  13. OXYNORM [Concomitant]
  14. BIOTONIN [Concomitant]
  15. ATROVENT [Concomitant]
  16. TOILAX [Concomitant]
  17. OXYCONTIN [Concomitant]
  18. VENTOLIN [Concomitant]
  19. SOLU-CORTEF [Concomitant]
  20. ZOLOFT [Concomitant]
  21. LAXOBERAL ^BOEHRINGER INGELHEIM^ [Concomitant]
  22. AFIPRAN [Concomitant]

REACTIONS (8)
  - ATRIAL FIBRILLATION [None]
  - BACTERIA SPUTUM IDENTIFIED [None]
  - BRONCHIAL OBSTRUCTION [None]
  - DIARRHOEA [None]
  - DYSPNOEA [None]
  - MORAXELLA INFECTION [None]
  - PLEURAL EFFUSION [None]
  - THERAPY NON-RESPONDER [None]
